FAERS Safety Report 6941964-1 (Version None)
Quarter: 2010Q3

REPORT INFORMATION
  Report Type: 
  Country: None (occurrence: None)
  Receive Date: 20100826
  Receipt Date: 20100820
  Transmission Date: 20110219
  Serious: Yes (Other)
  Sender: FDA-Public Use
  Company Number: US-RB-014475-10

PATIENT
  Sex: Female

DRUGS (2)
  1. SUBOXONE [Suspect]
     Indication: DRUG DEPENDENCE
     Dosage: DOSE TAPERED FROM 40 MG DAILY DOWN TO 1 MG DAILY
     Route: 060
     Dates: start: 20100601, end: 20100801
  2. SUBOXONE [Suspect]
     Indication: PAIN
     Dosage: DOSE TAPERED FROM 40 MG DAILY DOWN TO 1 MG DAILY
     Route: 060
     Dates: start: 20100601, end: 20100801

REACTIONS (4)
  - DRUG WITHDRAWAL SYNDROME [None]
  - HALLUCINATION [None]
  - INSOMNIA [None]
  - TREMOR [None]
